FAERS Safety Report 24712422 (Version 1)
Quarter: 2024Q4

REPORT INFORMATION
  Report Type: Spontaneous
  Country: FR (occurrence: FR)
  Receive Date: 20241209
  Receipt Date: 20241209
  Transmission Date: 20250115
  Serious: Yes (Hospitalization, Other)
  Sender: MYLAN
  Company Number: None

PATIENT
  Age: 22 Year
  Sex: Female

DRUGS (2)
  1. LYRICA [Suspect]
     Active Substance: PREGABALIN
     Indication: Product used for unknown indication
     Dosage: 600 MILLIGRAM
     Route: 048
     Dates: start: 202311, end: 20241103
  2. NITROUS OXIDE [Suspect]
     Active Substance: NITROUS OXIDE
     Indication: Product used for unknown indication
     Dosage: 4 CYLINDERS/EVENING QD
     Route: 055
     Dates: start: 202405, end: 20241103

REACTIONS (7)
  - Subacute combined cord degeneration [Recovering/Resolving]
  - Paraparesis [Recovering/Resolving]
  - Hyperhomocysteinaemia [Recovered/Resolved]
  - Anal incontinence [Recovering/Resolving]
  - Tremor [Recovering/Resolving]
  - Urinary incontinence [Recovering/Resolving]
  - Drug abuse [Not Recovered/Not Resolved]

NARRATIVE: CASE EVENT DATE: 20231101
